FAERS Safety Report 23905390 (Version 1)
Quarter: 2024Q2

REPORT INFORMATION
  Report Type: Other
  Country: GB (occurrence: GB)
  Receive Date: 20240527
  Receipt Date: 20240527
  Transmission Date: 20240716
  Serious: Yes (Other)
  Sender: FDA-Public Use
  Company Number: GB-GLENMARK PHARMACEUTICALS-2024GMK090912

PATIENT

DRUGS (16)
  1. ROSUVASTATIN CALCIUM [Suspect]
     Active Substance: ROSUVASTATIN CALCIUM
     Indication: Product used for unknown indication
     Dosage: 5 MILLIGRAM, 3 EVERY 1 WEEK (ONE TABLET THREE TIMES A WEEK MON, WED AND FRI ...)
     Route: 048
     Dates: start: 20240131, end: 20240513
  2. ROSUVASTATIN CALCIUM [Suspect]
     Active Substance: ROSUVASTATIN CALCIUM
     Dosage: UNK (DOSE REDUCED)
     Route: 048
     Dates: start: 20240514
  3. AMLODIPINE [Concomitant]
     Active Substance: AMLODIPINE BESYLATE
     Indication: Product used for unknown indication
     Dosage: 1 DOSAGE FORM, QD (ONE TO BE TAKEN EACH DAY)
     Route: 065
     Dates: start: 20231025
  4. BETESIL [Concomitant]
     Indication: Product used for unknown indication
     Dosage: UNK (APPLY ON NEW ERROSIONS DAILY FOR ONE MONTH AS P...)
     Route: 065
     Dates: start: 20231025
  5. CANDESARTAN [Concomitant]
     Active Substance: CANDESARTAN
     Indication: Product used for unknown indication
     Dosage: 1 DOSAGE FORM, OD (ONE TO BE TAKEN EACH DAY)
     Route: 065
     Dates: start: 20231025
  6. COCODAMOL [Concomitant]
     Active Substance: ACETAMINOPHEN\CODEINE PHOSPHATE
     Indication: Product used for unknown indication
     Dosage: 1 DOSAGE FORM, QID, (ONE TO BE TAKEN FOUR TIMES A DAY)
     Route: 065
     Dates: start: 20231025
  7. FEXOFENADINE [Concomitant]
     Active Substance: FEXOFENADINE HYDROCHLORIDE
     Indication: Product used for unknown indication
     Dosage: 1 DOSAGE FORM, OD (ONE TO BE TAKEN EACH DAY)
     Route: 065
     Dates: start: 20231025
  8. IBUPROFEN [Concomitant]
     Active Substance: IBUPROFEN
     Indication: Product used for unknown indication
     Dosage: UNK, PRN (APPLY THREE TIMES DAILY AS REQUIRED)
     Route: 065
     Dates: start: 20231025
  9. LANSOPRAZOLE [Concomitant]
     Active Substance: LANSOPRAZOLE
     Indication: Product used for unknown indication
     Dosage: 1 DOSAGE FORM, AM (ONE TO BE TAKEN EACH MORNING)
     Route: 065
     Dates: start: 20231025
  10. MELATONIN [Concomitant]
     Active Substance: MELATONIN
     Indication: Product used for unknown indication
     Dosage: UNK (START WITH ONE TABLET AT NIGHT - DOSE TAKEN 30-...)
     Route: 065
     Dates: start: 20240514
  11. NAPROXEN [Concomitant]
     Active Substance: NAPROXEN
     Indication: Product used for unknown indication
     Dosage: 1 DOSAGE FORM, BID (ONE TO BE TAKEN TWICE A DAY WITH FOOD)
     Route: 065
     Dates: start: 20231025
  12. PRAVASTATIN [Concomitant]
     Active Substance: PRAVASTATIN
     Indication: Blood cholesterol increased
     Dosage: 1 DOSAGE FORM, OD (TAKE ONE AT NIGHT FOR CHOLESTEROL REDUCTION)
     Route: 065
     Dates: start: 20240514
  13. PREGABALIN [Concomitant]
     Active Substance: PREGABALIN
     Indication: Product used for unknown indication
     Dosage: UNK; ONE TO BE TAKEN TWICE A DAY - TAKE SECOND DOSE ...
     Route: 065
     Dates: start: 20231025
  14. TEGRETOL [Concomitant]
     Active Substance: CARBAMAZEPINE
     Indication: Product used for unknown indication
     Dosage: UNK (ONE A DAY FOR TWO WEEKS AND THEN INCREASE TO TW...)
     Route: 065
     Dates: start: 20231025
  15. VENLAFAXINE [Concomitant]
     Active Substance: VENLAFAXINE HYDROCHLORIDE
     Indication: Product used for unknown indication
     Dosage: 1 DOSAGE FORM, OD (ONE TO BE TAKEN EACH DAY IN THE MORNING (DAILY ...)
     Route: 065
     Dates: start: 20231025
  16. ZOPICLONE [Concomitant]
     Active Substance: ZOPICLONE
     Indication: Product used for unknown indication
     Dosage: 1 DOSAGE FORM, OD (ONE TO BE TAKEN AT NIGHT- ENROLLED IN SLEEP STA...)
     Route: 065
     Dates: start: 20231025

REACTIONS (2)
  - Pain in extremity [Recovered/Resolved]
  - Musculoskeletal pain [Unknown]

NARRATIVE: CASE EVENT DATE: 20240304
